FAERS Safety Report 15716422 (Version 7)
Quarter: 2021Q2

REPORT INFORMATION
  Report Type: Report from Study
  Country: US (occurrence: US)
  Receive Date: 20181213
  Receipt Date: 20210503
  Transmission Date: 20210716
  Serious: Yes (Hospitalization, Other)
  Sender: FDA-Public Use
  Company Number: US-ACADIA PHARMACEUTICALS INC.-ACA-2018-011131

PATIENT
  Age: 90 Year
  Sex: Female

DRUGS (1)
  1. NUPLAZID [Suspect]
     Active Substance: PIMAVANSERIN TARTRATE
     Indication: PARKINSON^S DISEASE
     Dosage: 34 MG, QD
     Route: 048
     Dates: start: 20181129

REACTIONS (9)
  - Sternal fracture [Unknown]
  - Fall [Unknown]
  - Gait inability [Unknown]
  - Fall [Unknown]
  - Panic attack [Recovered/Resolved]
  - Foreign body in throat [Unknown]
  - Pain in extremity [Unknown]
  - Delusion [Recovered/Resolved]
  - Fall [Unknown]

NARRATIVE: CASE EVENT DATE: 20181207
